FAERS Safety Report 10007349 (Version 1)
Quarter: 2014Q1

REPORT INFORMATION
  Report Type: Spontaneous
  Country: GB (occurrence: None)
  Receive Date: 20140311
  Receipt Date: 20140311
  Transmission Date: 20141002
  Serious: Yes (Other)
  Sender: FDA-Public Use
  Company Number: COL_15386_2014

PATIENT
  Age: 27 Year
  Sex: Male

DRUGS (4)
  1. DURAPHAT [Suspect]
     Indication: DENTAL CARIES
     Dosage: 1 DF TWICE/ TOPICAL
     Route: 061
     Dates: start: 20140127, end: 20140128
  2. ADRENALINE HYDROCHLORIDE W/ ARTICAINE HCL [Concomitant]
  3. LIGNOCAINE/00033401/ [Concomitant]
  4. MELATONIN [Concomitant]

REACTIONS (13)
  - Hypersensitivity [None]
  - Infection [None]
  - Tongue ulceration [None]
  - Body temperature increased [None]
  - Swelling face [None]
  - Chills [None]
  - Gingival pain [None]
  - Oedema mouth [None]
  - Tongue ulceration [None]
  - Malaise [None]
  - Lip ulceration [None]
  - Lip swelling [None]
  - Swollen tongue [None]
